FAERS Safety Report 7288327-X (Version None)
Quarter: 2011Q1

REPORT INFORMATION
  Report Type: 
  Country: None (occurrence: None)
  Receive Date: 20110211
  Receipt Date: 20110208
  Transmission Date: 20110831
  Serious: Yes (Other)
  Sender: FDA-Public Use
  Company Number: BR-PFIZER INC-2011027714

PATIENT
  Sex: Female

DRUGS (2)
  1. GEODON [Suspect]
     Dosage: UNK
     Route: 048
     Dates: start: 20090101
  2. GEODON [Suspect]
     Dosage: 40MG IN THE MORNING AND 80MG AT NIGHT
     Route: 048

REACTIONS (4)
  - WEIGHT INCREASED [None]
  - INFERTILITY [None]
  - BLOOD PROLACTIN INCREASED [None]
  - SOMNOLENCE [None]
